FAERS Safety Report 12875568 (Version 1)
Quarter: 2016Q4

REPORT INFORMATION
  Report Type: Spontaneous
  Country: GB (occurrence: GB)
  Receive Date: 20161024
  Receipt Date: 20161024
  Transmission Date: 20170207
  Serious: Yes (Hospitalization, Other)
  Sender: FDA-Public Use
  Company Number: GB-ACCORD-045059

PATIENT
  Age: 65 Year
  Sex: Female
  Weight: 63.5 kg

DRUGS (12)
  1. CHLORPHENAMINE/CHLORPHENAMINE MALEATE/CHLORPHENAMINE RESINATE/CHLORPHENAMINE TANNATE [Concomitant]
  2. LEVOTHYROXINE. [Concomitant]
     Active Substance: LEVOTHYROXINE
  3. SALBUTAMOL [Concomitant]
     Active Substance: ALBUTEROL
  4. BUDESONIDE AND FORMOTEROL FUMARATE [Concomitant]
     Active Substance: BUDESONIDE\FORMOTEROL FUMARATE
  5. FELODIPINE. [Concomitant]
     Active Substance: FELODIPINE
  6. INFLUENZA VACCINE [Concomitant]
     Active Substance: INFLUENZA VIRUS VACCINE
  7. ROSUVASTATIN/ROSUVASTATIN CALCIUM [Concomitant]
  8. LISINOPRIL. [Suspect]
     Active Substance: LISINOPRIL
     Indication: PRODUCT USED FOR UNKNOWN INDICATION
     Route: 048
     Dates: start: 20150617, end: 20160708
  9. INDAPAMIDE/INDAPAMIDE HEMIHYDRATE [Concomitant]
  10. EMERADE [Concomitant]
     Indication: HYPERSENSITIVITY
  11. ATORVASTATIN [Concomitant]
     Active Substance: ATORVASTATIN
  12. MAXITROL [Concomitant]
     Active Substance: DEXAMETHASONE\NEOMYCIN SULFATE\POLYMYXIN B SULFATE

REACTIONS (2)
  - Tongue pruritus [Recovered/Resolved with Sequelae]
  - Swollen tongue [Recovered/Resolved with Sequelae]

NARRATIVE: CASE EVENT DATE: 20160708
